FAERS Safety Report 20624551 (Version 1)
Quarter: 2022Q1

REPORT INFORMATION
  Report Type: Spontaneous
  Country: CN (occurrence: CN)
  Receive Date: 20220322
  Receipt Date: 20220322
  Transmission Date: 20220423
  Serious: Yes (Other)
  Sender: FDA-Public Use
  Company Number: CN-BAXTER-2022BAX006171

PATIENT
  Age: 52 Year
  Weight: 60 kg

DRUGS (5)
  1. CYCLOPHOSPHAMIDE [Suspect]
     Active Substance: CYCLOPHOSPHAMIDE
     Indication: Breast cancer
     Dosage: CYCLOPHOSPHAMIDE FOR INJECTION (ENDOXAN CTX) 890 MG + NS 45ML
     Route: 042
     Dates: start: 20220114, end: 20220114
  2. SODIUM CHLORIDE [Suspect]
     Active Substance: SODIUM CHLORIDE
     Indication: Medication dilution
     Dosage: CYCLOPHOSPHAMIDE FOR INJECTION (ENDOXAN CTX) 890 MG + NS 45ML
     Route: 042
     Dates: start: 20220114, end: 20220114
  3. SODIUM CHLORIDE [Suspect]
     Active Substance: SODIUM CHLORIDE
     Dosage: DOCETAXEL INJECTION (HUIYU) 120 MG + NS 250 ML
     Route: 041
     Dates: start: 20220114, end: 20220114
  4. DOCETAXEL [Suspect]
     Active Substance: DOCETAXEL
     Indication: Breast cancer
     Dosage: DOCETAXEL INJECTION (HUIYU) 120 MG + NS 250 ML
     Route: 041
     Dates: start: 20220114, end: 20220114
  5. ANF-RHO [Concomitant]
     Active Substance: ANF-RHO
     Indication: Product used for unknown indication
     Route: 058
     Dates: start: 202201

REACTIONS (2)
  - White blood cell count decreased [Recovered/Resolved]
  - Agranulocytosis [Recovered/Resolved]

NARRATIVE: CASE EVENT DATE: 20220121
